APPROVED DRUG PRODUCT: AMLODIPINE BESYLATE
Active Ingredient: AMLODIPINE BESYLATE
Strength: EQ 5MG BASE
Dosage Form/Route: TABLET;ORAL
Application: A204900 | Product #002
Applicant: SOVEREIGN PHARMACEUTICALS LLC
Approved: Jul 23, 2015 | RLD: No | RS: No | Type: DISCN